FAERS Safety Report 9614473 (Version 1)
Quarter: 2013Q4

REPORT INFORMATION
  Report Type: Spontaneous
  Country: US (occurrence: US)
  Receive Date: 20131011
  Receipt Date: 20131011
  Transmission Date: 20140711
  Serious: Yes (Other)
  Sender: FDA-Public Use
  Company Number: US-PFIZER INC-2013289798

PATIENT
  Age: 69 Year
  Sex: Male
  Weight: 90.25 kg

DRUGS (1)
  1. ZOLOFT [Suspect]
     Indication: DEPRESSION
     Dosage: 100 MG, 2X/DAY
     Route: 048
     Dates: start: 1995

REACTIONS (1)
  - Hypoacusis [Not Recovered/Not Resolved]
